FAERS Safety Report 13303104 (Version 1)
Quarter: 2017Q1

REPORT INFORMATION
  Report Type: Spontaneous
  Country: US (occurrence: US)
  Receive Date: 20170307
  Receipt Date: 20170307
  Transmission Date: 20170428
  Serious: No
  Sender: FDA-Public Use
  Company Number: US-INCYTE CORPORATION-2017IN001546

PATIENT
  Age: 13 Year
  Sex: Male

DRUGS (5)
  1. JAKAVI [Suspect]
     Active Substance: RUXOLITINIB
     Dosage: 5 MG, BID
     Route: 065
     Dates: start: 201609
  2. JAKAVI [Suspect]
     Active Substance: RUXOLITINIB
     Indication: CHRONIC GRAFT VERSUS HOST DISEASE IN SKIN
     Dosage: 10 MG, BID
     Route: 065
     Dates: start: 201604
  3. BASILIXIMAB [Concomitant]
     Active Substance: BASILIXIMAB
     Indication: CHRONIC GRAFT VERSUS HOST DISEASE IN SKIN
     Dosage: UNK
     Route: 065
  4. JAKAVI [Suspect]
     Active Substance: RUXOLITINIB
     Dosage: 10 MG IN MORNING AND 5 MG IN EVENING, BID
     Route: 065
     Dates: start: 201607
  5. PREDNISONE. [Concomitant]
     Active Substance: PREDNISONE
     Indication: CHRONIC GRAFT VERSUS HOST DISEASE IN SKIN
     Dosage: UNK
     Route: 065
     Dates: end: 201605

REACTIONS (2)
  - Product use issue [Unknown]
  - Anaemia [Unknown]
